FAERS Safety Report 11969648 (Version 2)
Quarter: 2016Q1

REPORT INFORMATION
  Report Type: Spontaneous
  Country: US (occurrence: US)
  Receive Date: 20160128
  Receipt Date: 20160310
  Transmission Date: 20160526
  Serious: Yes (Other)
  Sender: FDA-Public Use
  Company Number: US-009507513-1601USA009418

PATIENT
  Sex: Male

DRUGS (1)
  1. ZETIA [Suspect]
     Active Substance: EZETIMIBE
     Indication: BLOOD CHOLESTEROL INCREASED
     Dosage: ONE TABLET/ONCE A DAY, STARTED YEARS AGO
     Route: 048

REACTIONS (2)
  - Product quality issue [Unknown]
  - Aphonia [Not Recovered/Not Resolved]
